FAERS Safety Report 13514335 (Version 10)
Quarter: 2018Q1

REPORT INFORMATION
  Report Type: Report from Study
  Country: US (occurrence: US)
  Receive Date: 20170504
  Receipt Date: 20180131
  Transmission Date: 20180508
  Serious: Yes (Hospitalization, Other)
  Sender: FDA-Public Use
  Company Number: US-BAYER-2017-058366

PATIENT
  Age: 58 Year
  Sex: Male

DRUGS (18)
  1. ADEMPAS [Suspect]
     Active Substance: RIOCIGUAT
     Indication: PULMONARY ARTERIAL HYPERTENSION
     Dosage: 1 MG, TID
     Route: 048
  2. ADEMPAS [Suspect]
     Active Substance: RIOCIGUAT
     Indication: PULMONARY ARTERIAL HYPERTENSION
     Dosage: 1.5 MG, TID
     Route: 048
  3. APIXABAN [Concomitant]
     Active Substance: APIXABAN
     Dosage: UNK
  4. ADEMPAS [Suspect]
     Active Substance: RIOCIGUAT
     Indication: PULMONARY ARTERIAL HYPERTENSION
     Dosage: UNK
     Dates: start: 20170308
  5. ADEMPAS [Suspect]
     Active Substance: RIOCIGUAT
     Indication: PULMONARY ARTERIAL HYPERTENSION
     Dosage: 2.5 MG, TID
     Route: 048
  6. ADEMPAS [Suspect]
     Active Substance: RIOCIGUAT
     Indication: PULMONARY ARTERIAL HYPERTENSION
     Dosage: 1.0 MG, TID
     Route: 048
  7. ADEMPAS [Suspect]
     Active Substance: RIOCIGUAT
     Indication: PULMONARY ARTERIAL HYPERTENSION
     Dosage: 2 MG, TID
     Route: 048
  8. ADEMPAS [Suspect]
     Active Substance: RIOCIGUAT
     Indication: PULMONARY ARTERIAL HYPERTENSION
     Dosage: 1 MG, TID
     Route: 048
  9. ADEMPAS [Suspect]
     Active Substance: RIOCIGUAT
     Indication: PULMONARY ARTERIAL HYPERTENSION
     Dosage: 2 MG, TID
     Route: 048
  10. ADEMPAS [Suspect]
     Active Substance: RIOCIGUAT
     Indication: PULMONARY ARTERIAL HYPERTENSION
     Dosage: 1.5 MG, TID
     Route: 048
  11. ADEMPAS [Suspect]
     Active Substance: RIOCIGUAT
     Indication: PULMONARY ARTERIAL HYPERTENSION
     Dosage: 2.5 MG, TID
     Route: 048
  12. DILTIAZEM. [Concomitant]
     Active Substance: DILTIAZEM
     Dosage: UNK
  13. ADEMPAS [Suspect]
     Active Substance: RIOCIGUAT
     Indication: PULMONARY ARTERIAL HYPERTENSION
     Dosage: 1.5 MG, TID
     Route: 048
  14. OPSUMIT [Concomitant]
     Active Substance: MACITENTAN
     Dosage: UNK
  15. ADEMPAS [Suspect]
     Active Substance: RIOCIGUAT
     Indication: PULMONARY ARTERIAL HYPERTENSION
     Dosage: 2 MG, TID
     Route: 048
  16. ADEMPAS [Suspect]
     Active Substance: RIOCIGUAT
     Indication: PULMONARY ARTERIAL HYPERTENSION
     Dosage: 1 MG, TID
     Route: 048
  17. ADEMPAS [Suspect]
     Active Substance: RIOCIGUAT
     Indication: PULMONARY ARTERIAL HYPERTENSION
     Dosage: UNK
     Dates: start: 20170308
  18. ADEMPAS [Suspect]
     Active Substance: RIOCIGUAT
     Indication: PULMONARY ARTERIAL HYPERTENSION
     Dosage: 1.5 MG, TID
     Route: 048

REACTIONS (45)
  - Hypotension [Not Recovered/Not Resolved]
  - Dizziness [Unknown]
  - Syncope [None]
  - Fatigue [Not Recovered/Not Resolved]
  - Dysgeusia [Not Recovered/Not Resolved]
  - Muscle spasms [Unknown]
  - Skin hypopigmentation [Unknown]
  - Dehydration [None]
  - Hypoaesthesia [Not Recovered/Not Resolved]
  - Vision blurred [Unknown]
  - Dyspnoea exertional [Not Recovered/Not Resolved]
  - Bronchitis [None]
  - Ageusia [Unknown]
  - Asthenia [Not Recovered/Not Resolved]
  - Dyspepsia [None]
  - Chest discomfort [Unknown]
  - Hypoaesthesia [None]
  - Syncope [Not Recovered/Not Resolved]
  - Dizziness [Unknown]
  - Fluid retention [Unknown]
  - Fall [Unknown]
  - Weight decreased [None]
  - Syncope [None]
  - Hypoaesthesia [Not Recovered/Not Resolved]
  - Poor quality sleep [Unknown]
  - Peripheral swelling [Recovering/Resolving]
  - Dizziness [Not Recovered/Not Resolved]
  - Feeling abnormal [Not Recovered/Not Resolved]
  - Loss of consciousness [Unknown]
  - Pain in extremity [Unknown]
  - Fall [Unknown]
  - Oedema peripheral [Unknown]
  - Musculoskeletal pain [None]
  - Head discomfort [Not Recovered/Not Resolved]
  - Loss of consciousness [Recovered/Resolved]
  - Blood electrolytes decreased [Not Recovered/Not Resolved]
  - Weight increased [Unknown]
  - Contusion [Unknown]
  - Musculoskeletal pain [None]
  - Dyspnoea [Not Recovered/Not Resolved]
  - Dysgeusia [Recovered/Resolved]
  - Blood potassium decreased [Unknown]
  - Hypotension [Not Recovered/Not Resolved]
  - Decreased appetite [None]
  - Constipation [None]

NARRATIVE: CASE EVENT DATE: 2017
